FAERS Safety Report 8807779 (Version 3)
Quarter: 2014Q1

REPORT INFORMATION
  Report Type: Spontaneous
  Country: US (occurrence: US)
  Receive Date: 20120925
  Receipt Date: 20140109
  Transmission Date: 20141002
  Serious: No
  Sender: FDA-Public Use
  Company Number: US-ASTRAZENECA-2012SE71808

PATIENT
  Age: 65 Year
  Sex: Female
  Weight: 71.2 kg

DRUGS (6)
  1. NEXIUM [Suspect]
     Indication: GASTROOESOPHAGEAL REFLUX DISEASE
     Route: 048
     Dates: end: 201311
  2. CRESTOR [Suspect]
     Indication: BLOOD CHOLESTEROL INCREASED
     Route: 048
  3. LOSARTAN [Concomitant]
     Indication: BLOOD PRESSURE ABNORMAL
  4. ASPIRIN [Concomitant]
     Indication: ANTICOAGULANT THERAPY
  5. LEXAPRO [Concomitant]
     Indication: DEPRESSION
  6. LATANOPROST [Concomitant]
     Indication: GLAUCOMA

REACTIONS (12)
  - Hiatus hernia [Unknown]
  - Contusion [Unknown]
  - Dyspepsia [Unknown]
  - Regurgitation [Unknown]
  - Hernia [Unknown]
  - Sleep disorder due to a general medical condition [Unknown]
  - Blood cholesterol increased [Unknown]
  - Memory impairment [Unknown]
  - Malaise [Unknown]
  - Nausea [Unknown]
  - Abdominal discomfort [Unknown]
  - Drug dose omission [Unknown]
